FAERS Safety Report 7420202-X (Version None)
Quarter: 2011Q2

REPORT INFORMATION
  Report Type: 
  Country: None (occurrence: None)
  Receive Date: 20110418
  Receipt Date: 20110411
  Transmission Date: 20111010
  Serious: Yes (Death, Hospitalization)
  Sender: FDA-Public Use
  Company Number: GB-TEVA-239388ISR

PATIENT
  Sex: Male

DRUGS (10)
  1. ABTRATERONE ACETATE/PLACEBO [Suspect]
     Indication: PROSTATE CANCER METASTATIC
     Dosage: 250 MILLIGRAM;
     Route: 048
     Dates: start: 20091124, end: 20100318
  2. IRBESARTAN [Concomitant]
     Indication: HYPERTENSION
     Dosage: 300 MILLIGRAM;
     Route: 048
     Dates: start: 20070713
  3. LANSOPRAZOLE [Concomitant]
     Indication: GASTROOESOPHAGEAL REFLUX DISEASE
     Dosage: 30 MILLIGRAM;
     Route: 048
     Dates: start: 20090420
  4. LOPERAMIDE [Concomitant]
     Indication: DIARRHOEA
     Route: 048
     Dates: start: 20100223
  5. PROCHLORPERAZINE TAB [Concomitant]
     Indication: VOMITING
     Route: 030
     Dates: start: 20100318
  6. CYCLIZINE [Concomitant]
     Indication: ANTIEMETIC SUPPORTIVE CARE
     Dosage: 150 MILLIGRAM;
     Route: 030
     Dates: start: 20100318
  7. DICLOFENAC SODIUM [Concomitant]
     Indication: DISEASE PROGRESSION
     Dosage: 75 MILLIGRAM;
     Route: 048
     Dates: start: 20091007
  8. PREDNISOLONE [Suspect]
     Indication: PROSTATE CANCER METASTATIC
     Dosage: 75 MILLIGRAM;
     Route: 048
     Dates: start: 20091124
  9. LEKOVIT CA [Concomitant]
     Route: 048
     Dates: start: 20050131
  10. ATENOLOL [Concomitant]
     Indication: HYPERTENSION
     Dosage: 50 MILLIGRAM;
     Route: 048
     Dates: start: 20070706

REACTIONS (2)
  - PROSTATE CANCER METASTATIC [None]
  - INTESTINAL ISCHAEMIA [None]
